FAERS Safety Report 6893292-0 (Version None)
Quarter: 2010Q3

REPORT INFORMATION
  Report Type: 
  Country: None (occurrence: None)
  Receive Date: 20100731
  Receipt Date: 20090803
  Transmission Date: 20110219
  Serious: No
  Sender: FDA-Public Use
  Company Number: US-PFIZER INC-2009226006

PATIENT
  Sex: Female
  Weight: 87.528 kg

DRUGS (3)
  1. GABAPENTIN [Suspect]
     Indication: HEADACHE
     Dosage: 300 MG, 3X/DAY
     Dates: start: 20090401
  2. HYDROCORTISONE [Concomitant]
     Dosage: UNK
  3. SYNTHROID [Concomitant]
     Dosage: UNK

REACTIONS (1)
  - DRUG INEFFECTIVE [None]
